FAERS Safety Report 12547864 (Version 1)
Quarter: 2016Q3

REPORT INFORMATION
  Report Type: Spontaneous
  Country: CA (occurrence: CA)
  Receive Date: 20160712
  Receipt Date: 20160712
  Transmission Date: 20161109
  Serious: Yes (Other)
  Sender: FDA-Public Use
  Company Number: CA-JNJFOC-20160704329

PATIENT
  Age: 72 Year
  Sex: Male

DRUGS (5)
  1. PREZISTA [Suspect]
     Active Substance: DARUNAVIR ETHANOLATE
     Indication: ANTIVIRAL TREATMENT
     Route: 048
  2. ABACAVIR. [Concomitant]
     Active Substance: ABACAVIR
     Route: 065
  3. NORVIR [Interacting]
     Active Substance: RITONAVIR
     Indication: ANTIVIRAL TREATMENT
     Route: 048
  4. FELODIPINE. [Concomitant]
     Active Substance: FELODIPINE
     Route: 065
  5. LAMIVUDINE. [Concomitant]
     Active Substance: LAMIVUDINE
     Route: 065

REACTIONS (3)
  - Flushing [Unknown]
  - Drug interaction [Unknown]
  - Swelling [Unknown]
